FAERS Safety Report 5012244-9 (Version None)
Quarter: 2006Q2

REPORT INFORMATION
  Report Type: 
  Country: None (occurrence: None)
  Receive Date: 20060525
  Receipt Date: 20060525
  Transmission Date: 20061013
  Serious: Yes (Death)
  Sender: FDA-Public Use
  Company Number: None

PATIENT
  Age: 54 Year
  Sex: Male

DRUGS (1)
  1. HEPARIN [Suspect]
     Indication: THROMBOSIS PROPHYLAXIS
     Dosage: 5000 UNITS TID SQ
     Route: 058

REACTIONS (17)
  - ACUTE RESPIRATORY DISTRESS SYNDROME [None]
  - AREFLEXIA [None]
  - BLOOD CULTURE POSITIVE [None]
  - CANDIDIASIS [None]
  - CARDIAC DISORDER [None]
  - CARDIO-RESPIRATORY ARREST [None]
  - CEREBRAL INFARCTION [None]
  - CORNEAL REFLEX DECREASED [None]
  - ELECTROENCEPHALOGRAM ABNORMAL [None]
  - EYE MOVEMENT DISORDER [None]
  - HAEMODIALYSIS [None]
  - HEPARIN-INDUCED THROMBOCYTOPENIA [None]
  - HYPOREFLEXIA [None]
  - MOVEMENT DISORDER [None]
  - MYOCARDIAL ISCHAEMIA [None]
  - PNEUMONIA STAPHYLOCOCCAL [None]
  - UNRESPONSIVE TO PAIN STIMULI [None]
